FAERS Safety Report 6422428-0 (Version None)
Quarter: 2009Q4

REPORT INFORMATION
  Report Type: 
  Country: None (occurrence: None)
  Receive Date: 20091030
  Receipt Date: 20091020
  Transmission Date: 20100525
  Serious: Yes (Hospitalization)
  Sender: FDA-Public Use
  Company Number: ES-ABBOTT-09P-144-0604081-00

PATIENT
  Age: 82 Year
  Sex: Male

DRUGS (8)
  1. SODIUM VALPROATE CHRONO [Suspect]
     Indication: ODYNOPHAGIA
  2. SODIUM VALPROATE CHRONO [Suspect]
     Indication: MANIA
  3. SODIUM VALPROATE CHRONO [Suspect]
     Indication: BIPOLAR DISORDER
  4. FLUCONAZOLE [Concomitant]
     Indication: OESOPHAGEAL CANDIDIASIS
     Dosage: NOT REPORTED
  5. FLUCONAZOLE [Concomitant]
     Route: 048
  6. TIOTROPIUM [Concomitant]
     Indication: ODYNOPHAGIA
     Dosage: NOT REPORTED
  7. FLUTICASONE [Concomitant]
     Indication: ODYNOPHAGIA
     Dosage: NOT REPORTED
  8. ALBUTEROL SULFATE AUTOHALER [Concomitant]
     Indication: ODYNOPHAGIA
     Dosage: NOT REPORTED

REACTIONS (1)
  - INAPPROPRIATE ANTIDIURETIC HORMONE SECRETION [None]
